FAERS Safety Report 7283441-7 (Version None)
Quarter: 2011Q1

REPORT INFORMATION
  Report Type: 
  Country: None (occurrence: None)
  Receive Date: 20110204
  Receipt Date: 20110204
  Transmission Date: 20110831
  Serious: Yes (Other)
  Sender: FDA-Public Use
  Company Number: None

PATIENT
  Sex: Male
  Weight: 74.8435 kg

DRUGS (1)
  1. GLY-OXIDE - 2 OZ [Suspect]
     Indication: GINGIVAL PAIN
     Dates: start: 20110111

REACTIONS (7)
  - ORAL DISCOMFORT [None]
  - JAW DISORDER [None]
  - ORAL DISORDER [None]
  - GINGIVAL DISORDER [None]
  - GINGIVAL PAIN [None]
  - BONE DISORDER [None]
  - BURNING SENSATION [None]
